FAERS Safety Report 5695929-0 (Version None)
Quarter: 2008Q2

REPORT INFORMATION
  Report Type: 
  Country: None (occurrence: None)
  Receive Date: 20080407
  Receipt Date: 20080401
  Transmission Date: 20081010
  Serious: Yes (Other)
  Sender: FDA-Public Use
  Company Number: GB-BRISTOL-MYERS SQUIBB COMPANY-13767736

PATIENT
  Age: 60 Year
  Sex: Male

DRUGS (1)
  1. SPRYCEL [Suspect]
     Dosage: INITIATED:70MG/D;A WK LATER 70MG,BID,ALTERNATE DAYS;REDUCED BACK TO 70MG/D.
     Route: 048

REACTIONS (3)
  - CHEST PAIN [None]
  - CORONARY ARTERY STENOSIS [None]
  - PALPITATIONS [None]
